FAERS Safety Report 25677632 (Version 1)
Quarter: 2025Q3

REPORT INFORMATION
  Report Type: Spontaneous
  Country: US (occurrence: None)
  Receive Date: 20250813
  Receipt Date: 20250813
  Transmission Date: 20251021
  Serious: No
  Sender: FDA-CTU
  Company Number: None

PATIENT
  Age: 79 Year
  Sex: Female
  Weight: 65.25 kg

DRUGS (4)
  1. RHOPRESSA [Suspect]
     Active Substance: NETARSUDIL MESYLATE
     Indication: Glaucoma
     Route: 047
  2. LATANOPROST [Concomitant]
     Active Substance: LATANOPROST
  3. LEVOXYL [Concomitant]
     Active Substance: LEVOTHYROXINE SODIUM
  4. vitamin D 2000 daily [Concomitant]

REACTIONS (2)
  - Eye pain [None]
  - Ocular hyperaemia [None]

NARRATIVE: CASE EVENT DATE: 20250801
